FAERS Safety Report 4355354-1 (Version None)
Quarter: 2004Q2

REPORT INFORMATION
  Report Type: 
  Country: None (occurrence: None)
  Receive Date: 20040504
  Receipt Date: 20040422
  Transmission Date: 20050107
  Serious: Yes (Hospitalization)
  Sender: FDA-Public Use
  Company Number: US-JNJFOC-20040405905

PATIENT
  Age: 75 Year
  Sex: Female

DRUGS (1)
  1. LEVAQUIN [Suspect]
     Dates: start: 20031118

REACTIONS (2)
  - PAROTITIS [None]
  - STAPHYLOCOCCAL BACTERAEMIA [None]
